FAERS Safety Report 4963662-6 (Version None)
Quarter: 2006Q1

REPORT INFORMATION
  Report Type: 
  Country: None (occurrence: None)
  Receive Date: 20060330
  Receipt Date: 20060327
  Transmission Date: 20060701
  Serious: Yes (Death)
  Sender: FDA-Public Use
  Company Number: 200611072GDS

PATIENT
  Age: 55 Year
  Sex: Female

DRUGS (6)
  1. AVELOX [Suspect]
     Indication: INFECTION
     Dosage: 800 MG, TOTAL DAILY, INTRAVENOUS
     Route: 042
     Dates: start: 20060311, end: 20060313
  2. AVELOX [Suspect]
     Indication: PYREXIA
     Dosage: 800 MG, TOTAL DAILY, INTRAVENOUS
     Route: 042
     Dates: start: 20060311, end: 20060313
  3. AVELOX [Suspect]
     Indication: INFECTION
     Dosage: 800 MG, TOTAL DAILY, INTRAVENOUS
     Route: 042
     Dates: start: 20060317, end: 20060319
  4. AVELOX [Suspect]
     Indication: PYREXIA
     Dosage: 800 MG, TOTAL DAILY, INTRAVENOUS
     Route: 042
     Dates: start: 20060317, end: 20060319
  5. SULPERAZON [Concomitant]
  6. TIENAM [Concomitant]

REACTIONS (14)
  - ANAPHYLACTIC REACTION [None]
  - BRAIN HERNIATION [None]
  - BRAIN HYPOXIA [None]
  - BRAIN OEDEMA [None]
  - CEREBRAL ISCHAEMIA [None]
  - DISSEMINATED INTRAVASCULAR COAGULATION [None]
  - GENERAL PHYSICAL HEALTH DETERIORATION [None]
  - HEART RATE ABNORMAL [None]
  - INTRACRANIAL PRESSURE INCREASED [None]
  - MYDRIASIS [None]
  - PUPILLARY REFLEX IMPAIRED [None]
  - PYREXIA [None]
  - RESPIRATORY ARREST [None]
  - URTICARIA [None]
